FAERS Safety Report 7264492-5 (Version None)
Quarter: 2011Q1

REPORT INFORMATION
  Report Type: 
  Country: None (occurrence: None)
  Receive Date: 20110131
  Receipt Date: 20110125
  Transmission Date: 20110831
  Serious: No
  Sender: FDA-Public Use
  Company Number: US-PFIZER INC-2011018563

PATIENT
  Sex: Female
  Weight: 63.492 kg

DRUGS (3)
  1. ADVIL [Suspect]
     Indication: PAIN
  2. ADVIL [Suspect]
     Indication: ARTHRITIS
     Dosage: 100 MG, 2X/DAY
     Route: 048
  3. CORGARD [Concomitant]
     Indication: HYPERTENSION
     Dosage: UNK
     Route: 048
     Dates: start: 19910101

REACTIONS (1)
  - HALLUCINATION [None]
